FAERS Safety Report 14963744 (Version 1)
Quarter: 2018Q2

REPORT INFORMATION
  Report Type: Spontaneous
  Country: GB (occurrence: GB)
  Receive Date: 20180601
  Receipt Date: 20180601
  Transmission Date: 20180711
  Serious: Yes (Death)
  Sender: FDA-Public Use
  Company Number: GB-PFIZER INC-2018222125

PATIENT
  Age: 45 Year
  Sex: Female
  Weight: 120 kg

DRUGS (5)
  1. CYCLIZINE [Suspect]
     Active Substance: CYCLIZINE
     Dosage: UNK
  2. AMITRIPTYLINE [Suspect]
     Active Substance: AMITRIPTYLINE
     Dosage: UNK
  3. CODEINE [Suspect]
     Active Substance: CODEINE
  4. DIHYDROCODEINE [Suspect]
     Active Substance: DIHYDROCODEINE
     Dosage: UNK
  5. PREGABALIN. [Suspect]
     Active Substance: PREGABALIN
     Indication: ANALGESIC THERAPY
     Dosage: UNK
     Route: 048
     Dates: start: 20151022, end: 20171229

REACTIONS (2)
  - Toxicity to various agents [Fatal]
  - Overdose [Fatal]

NARRATIVE: CASE EVENT DATE: 20171229
